APPROVED DRUG PRODUCT: HYDRALAZINE HYDROCHLORIDE
Active Ingredient: HYDRALAZINE HYDROCHLORIDE
Strength: 50MG
Dosage Form/Route: TABLET;ORAL
Application: A087751 | Product #001
Applicant: USL PHARMA INC
Approved: Mar 29, 1982 | RLD: No | RS: No | Type: DISCN